FAERS Safety Report 4364229-3 (Version None)
Quarter: 2004Q2

REPORT INFORMATION
  Report Type: 
  Country: None (occurrence: None)
  Receive Date: 20040525
  Receipt Date: 20040520
  Transmission Date: 20050107
  Serious: Yes (Hospitalization)
  Sender: FDA-Public Use
  Company Number: US-BRISTOL-MYERS SQUIBB COMPANY-12592101

PATIENT
  Age: 69 Year
  Sex: Female
  Weight: 68 kg

DRUGS (9)
  1. ERBITUX [Suspect]
     Indication: COLON CANCER
     Dosage: 6TH INFUSION. LOADING DOSE GIVEN ON 24-MAR-04(750MG), 450MG GVEN ON 01,08, 26APR AND 06MAY04
     Route: 042
     Dates: start: 20040501, end: 20040501
  2. CAMPTOSAR [Concomitant]
     Route: 042
  3. KYTRIL [Concomitant]
     Indication: PREMEDICATION
     Dates: start: 20040501, end: 20040501
  4. BENADRYL [Concomitant]
     Indication: PREMEDICATION
     Dates: start: 20040501, end: 20040501
  5. COUMADIN [Concomitant]
     Dosage: DOSAGE FORM = 2.5 MG/DAY ALTERNATING WITH 5 MG/DAY
  6. DIGITEK [Concomitant]
  7. TORSEMIDE [Concomitant]
  8. METOPROLOL [Concomitant]
  9. ASPIRIN [Concomitant]

REACTIONS (2)
  - HYPOCALCAEMIA [None]
  - HYPOMAGNESAEMIA [None]
